FAERS Safety Report 14163549 (Version 3)
Quarter: 2018Q1

REPORT INFORMATION
  Report Type: Report from Study
  Country: None (occurrence: ES)
  Receive Date: 20171106
  Receipt Date: 20180116
  Transmission Date: 20180508
  Serious: Yes (Life-Threatening, Hospitalization, Other)
  Sender: FDA-Public Use
  Company Number: ES-ABBVIE-17P-144-2152247-00

PATIENT
  Age: 39 Year
  Sex: Male

DRUGS (1)
  1. VENETOCLAX. [Suspect]
     Active Substance: VENETOCLAX
     Indication: CHRONIC LYMPHOCYTIC LEUKAEMIA
     Route: 048
     Dates: start: 20170801, end: 201710

REACTIONS (10)
  - Malignant transformation [Unknown]
  - Anal abscess [Recovering/Resolving]
  - Escherichia sepsis [Recovered/Resolved]
  - Proctitis [Recovering/Resolving]
  - Metabolic acidosis [Unknown]
  - Septic shock [Recovered/Resolved]
  - Abdominal pain lower [Unknown]
  - Anorectal cellulitis [Unknown]
  - Hypotension [Unknown]
  - Pyrexia [Unknown]

NARRATIVE: CASE EVENT DATE: 201710
